FAERS Safety Report 9202845 (Version 2)
Quarter: 2013Q2

REPORT INFORMATION
  Report Type: Spontaneous
  Country: US (occurrence: US)
  Receive Date: 20130402
  Receipt Date: 20130412
  Transmission Date: 20140414
  Serious: Yes (Hospitalization, Other)
  Sender: FDA-Public Use
  Company Number: US-AMGEN-USASP2013022205

PATIENT
  Age: 59 Year
  Sex: Male
  Weight: 81.63 kg

DRUGS (2)
  1. ENBREL [Suspect]
     Indication: RHEUMATOID ARTHRITIS
     Dosage: 50 MG, QWK
     Dates: start: 1998, end: 2013
  2. ENBREL [Suspect]
     Dosage: UNK
     Dates: start: 2012, end: 2013

REACTIONS (5)
  - Hip arthroplasty [Recovered/Resolved]
  - Bedridden [Not Recovered/Not Resolved]
  - Rheumatoid arthritis [Not Recovered/Not Resolved]
  - Mobility decreased [Not Recovered/Not Resolved]
  - Musculoskeletal stiffness [Not Recovered/Not Resolved]
